FAERS Safety Report 21315156 (Version 1)
Quarter: 2022Q3

REPORT INFORMATION
  Report Type: Spontaneous
  Country: CN (occurrence: CN)
  Receive Date: 20220909
  Receipt Date: 20220909
  Transmission Date: 20221026
  Serious: Yes (Other)
  Sender: FDA-Public Use
  Company Number: CN-PFIZER INC-PV202200060121

PATIENT
  Age: 57 Year
  Sex: Male
  Weight: 62.5 kg

DRUGS (1)
  1. CYTARABINE [Suspect]
     Active Substance: CYTARABINE
     Indication: Chemotherapy
     Dosage: 5500 MG, 1X/DAY
     Route: 041
     Dates: start: 20220831, end: 20220902

REACTIONS (2)
  - Myelosuppression [Recovering/Resolving]
  - Melanocytic naevus [Recovering/Resolving]

NARRATIVE: CASE EVENT DATE: 20220905
